FAERS Safety Report 15278301 (Version 1)
Quarter: 2018Q3

REPORT INFORMATION
  Report Type: Report from Study
  Country: GR (occurrence: GR)
  Receive Date: 20180814
  Receipt Date: 20180814
  Transmission Date: 20181010
  Serious: Yes (Hospitalization)
  Sender: FDA-Public Use
  Company Number: GR-PFIZER INC-2018324033

PATIENT
  Age: 59 Year
  Sex: Female
  Weight: 88 kg

DRUGS (11)
  1. NEXIUM [Concomitant]
     Active Substance: ESOMEPRAZOLE MAGNESIUM
     Dates: start: 20160619, end: 20170721
  2. INNOHEP [Concomitant]
     Active Substance: TINZAPARIN SODIUM
     Dates: start: 20170619, end: 20170705
  3. CARBOPLATIN. [Suspect]
     Active Substance: CARBOPLATIN
     Indication: HER-2 POSITIVE BREAST CANCER
     Dosage: 600 MG, 1X/DAY (MOST RECENT DOSE ON 26/APR/2017)
     Route: 042
     Dates: start: 20170120
  4. ABRAXANE [Suspect]
     Active Substance: PACLITAXEL
     Indication: HER-2 POSITIVE BREAST CANCER
     Dosage: 200 MG, EVERY 3 WEEKS (MOST RECENT DOSE ON 26/APR/2017)
     Route: 042
     Dates: start: 20170120
  5. MANNITOL. [Concomitant]
     Active Substance: MANNITOL
     Dates: start: 20170711, end: 20170713
  6. NORVASC [Concomitant]
     Active Substance: AMLODIPINE BESYLATE
     Dates: end: 20170721
  7. PACLITAXEL. [Suspect]
     Active Substance: PACLITAXEL
     Indication: HER-2 POSITIVE BREAST CANCER
     Dosage: 280 MG, EVERY 3 WEEKS (MOST RECENT DOSE ON 27DEC2016)
     Route: 042
     Dates: start: 20161205
  8. PERTUZUMAB. [Suspect]
     Active Substance: PERTUZUMAB
     Indication: HER-2 POSITIVE BREAST CANCER
     Dosage: 420 MG, EVERY 3 WEEKS (MOST RECENT DOSE ON 27/DEC/2016)
     Route: 042
     Dates: start: 20161205
  9. TRIATEC /00885601/ [Concomitant]
     Active Substance: RAMIPRIL
     Dates: end: 20170721
  10. DECADRON [Concomitant]
     Active Substance: DEXAMETHASONE
     Dates: start: 20160619, end: 20170621
  11. TRASTUZUMAB. [Suspect]
     Active Substance: TRASTUZUMAB
     Indication: HER-2 POSITIVE BREAST CANCER
     Dosage: 520 MG, EVERY 3 WEEKS (MOST RECENT DOSE ON 26/APR/2017)
     Route: 042
     Dates: start: 20161205

REACTIONS (5)
  - Anxiety disorder [Recovered/Resolved]
  - Thrombocytopenia [Unknown]
  - Diarrhoea [Recovered/Resolved]
  - Muscular weakness [Recovered/Resolved]
  - Tumour associated fever [Recovered/Resolved]

NARRATIVE: CASE EVENT DATE: 20170619
